FAERS Safety Report 8707161 (Version 2)
Quarter: 2012Q4

REPORT INFORMATION
  Report Type: Report from Study
  Country: ES (occurrence: ES)
  Receive Date: 20120803
  Receipt Date: 20121226
  Transmission Date: 20130627
  Serious: Yes (Hospitalization)
  Sender: FDA-Public Use
  Company Number: ES-ABBOTT-12P-144-0960699-00

PATIENT
  Age: 48 Year
  Sex: Male

DRUGS (12)
  1. HUMIRA [Suspect]
     Indication: CROHN^S DISEASE
     Route: 058
     Dates: start: 20071115, end: 20071115
  2. HUMIRA [Suspect]
     Dosage: Week 2
     Route: 058
  3. HUMIRA [Suspect]
     Route: 058
  4. CLOPIDOGREL [Concomitant]
     Indication: MYOCARDIAL INFARCTION
     Dates: start: 2006
  5. OMEPRAZOL [Concomitant]
     Indication: GASTRIC DISORDER
     Dates: start: 2006
  6. OMEPRAZOL [Concomitant]
     Indication: PROPHYLAXIS
  7. ATORVASTATINA [Concomitant]
     Indication: MYOCARDIAL INFARCTION
     Dates: start: 2006
  8. RAMIPRIL [Concomitant]
     Indication: MYOCARDIAL INFARCTION
     Dates: start: 2009
  9. FUROSEMIDA [Concomitant]
     Indication: MYOCARDIAL INFARCTION
     Dates: start: 2006
  10. AZATHIOPRINE [Concomitant]
     Indication: CROHN^S DISEASE
     Dosage: Duration: 7 yrs, 7 mths
  11. SALAZOPIRINA [Concomitant]
     Indication: CROHN^S DISEASE
     Dosage: Duration:  10 mths
  12. SALAZOPIRINA [Concomitant]
     Indication: PROPHYLAXIS
     Dates: start: 20080801

REACTIONS (2)
  - Fistula discharge [Unknown]
  - Drug effect decreased [Unknown]
